FAERS Safety Report 24816915 (Version 1)
Quarter: 2025Q1

REPORT INFORMATION
  Report Type: Spontaneous
  Country: DE (occurrence: None)
  Receive Date: 20250108
  Receipt Date: 20250108
  Transmission Date: 20250409
  Serious: Yes (Other)
  Sender: Alvotech
  Company Number: DE-ALVOTECHPMS-2024-ALVOTECHPMS-002828

PATIENT
  Age: 57 Year
  Sex: Male

DRUGS (1)
  1. ADALIMUMAB [Suspect]
     Active Substance: ADALIMUMAB
     Indication: Psoriatic arthropathy
     Dosage: 40 MG
     Route: 058
     Dates: start: 202305, end: 202311

REACTIONS (1)
  - Parkinsonism [Unknown]
